FAERS Safety Report 24809723 (Version 1)
Quarter: 2025Q1

REPORT INFORMATION
  Report Type: Spontaneous
  Country: US (occurrence: US)
  Receive Date: 20250106
  Receipt Date: 20250106
  Transmission Date: 20250409
  Serious: No
  Sender: Apozeal Pharmaceuticals
  Company Number: US-Apozeal Pharmaceuticals-2168472

PATIENT

DRUGS (1)
  1. RISPERIDONE [Suspect]
     Active Substance: RISPERIDONE
     Indication: Mood swings

REACTIONS (4)
  - Fatigue [Unknown]
  - Product use in unapproved indication [Unknown]
  - Dizziness [Unknown]
  - Dysarthria [Unknown]
